FAERS Safety Report 4509672-4 (Version None)
Quarter: 2004Q4

REPORT INFORMATION
  Report Type: 
  Country: None (occurrence: None)
  Receive Date: 20041124
  Receipt Date: 20041115
  Transmission Date: 20050328
  Serious: Yes (Other)
  Sender: FDA-Public Use
  Company Number: PHEH2004US12300

PATIENT
  Age: 61 Year
  Sex: Female

DRUGS (4)
  1. ZELNORM [Suspect]
     Indication: COLONOSCOPY
     Dosage: 6 MG, BID
     Route: 048
     Dates: start: 20041016, end: 20041027
  2. ZELNORM [Suspect]
     Dosage: 6 MG, BID
     Route: 048
     Dates: start: 20041108, end: 20041113
  3. LAXATIVES [Concomitant]
  4. OXYCONTIN [Concomitant]

REACTIONS (1)
  - ANAL SPHINCTER ATONY [None]
